FAERS Safety Report 11434392 (Version 3)
Quarter: 2015Q3

REPORT INFORMATION
  Report Type: Report from Study
  Country: GB (occurrence: GB)
  Receive Date: 20150831
  Receipt Date: 20150924
  Transmission Date: 20151125
  Serious: Yes (Other)
  Sender: FDA-Public Use
  Company Number: GB-JNJFOC-20150817476

PATIENT
  Sex: Male

DRUGS (1)
  1. STELARA [Suspect]
     Active Substance: USTEKINUMAB
     Indication: PSORIASIS
     Dosage: 45MG(ONE SYRINGE) ON WEEK FOUR.
     Route: 058
     Dates: start: 20150812

REACTIONS (8)
  - Memory impairment [Unknown]
  - Peripheral swelling [Unknown]
  - Anxiety [Unknown]
  - Uveitis [Unknown]
  - Mood swings [Unknown]
  - Urine odour abnormal [Unknown]
  - Urethritis [Unknown]
  - Dry eye [Unknown]

NARRATIVE: CASE EVENT DATE: 2015
